FAERS Safety Report 16020377 (Version 2)
Quarter: 2019Q1

REPORT INFORMATION
  Report Type: Report from Study
  Country: None (occurrence: CO)
  Receive Date: 20190301
  Receipt Date: 20190321
  Transmission Date: 20190418
  Serious: Yes (Hospitalization, Other)
  Sender: FDA-Public Use
  Company Number: CO-ABBVIE-19K-036-2684554-00

PATIENT
  Age: 59 Year
  Sex: Male
  Weight: 62 kg

DRUGS (3)
  1. HUMIRA [Suspect]
     Active Substance: ADALIMUMAB
     Indication: CROHN^S DISEASE
     Route: 058
     Dates: end: 20190215
  2. HUMIRA [Suspect]
     Active Substance: ADALIMUMAB
     Indication: CROHN^S DISEASE
     Route: 058
     Dates: start: 20160706
  3. HUMIRA [Suspect]
     Active Substance: ADALIMUMAB
     Route: 058
     Dates: start: 20190308

REACTIONS (5)
  - Rectal prolapse [Recovering/Resolving]
  - Rectal haemorrhage [Recovering/Resolving]
  - Haemorrhoids [Recovering/Resolving]
  - Colonoscopy abnormal [Unknown]
  - Laboratory test abnormal [Unknown]

NARRATIVE: CASE EVENT DATE: 201808
